FAERS Safety Report 5509997-X (Version None)
Quarter: 2007Q4

REPORT INFORMATION
  Report Type: 
  Country: None (occurrence: None)
  Receive Date: 20071107
  Receipt Date: 20071107
  Transmission Date: 20080405
  Serious: Yes (Death)
  Sender: FDA-Public Use
  Company Number: None

PATIENT
  Age: 65 Year
  Sex: Male

DRUGS (2)
  1. OXALIPLATIN [Suspect]
     Indication: OESOPHAGEAL CARCINOMA
     Dosage: 130 MG/M2 IV
     Route: 042
     Dates: start: 20070707, end: 20071022
  2. CETUXIMAB [Suspect]
     Indication: OESOPHAGEAL CARCINOMA
     Dosage: 250 MG/M2 IV
     Route: 042
     Dates: start: 20070707, end: 20071022

REACTIONS (1)
  - DEATH [None]
